FAERS Safety Report 4766640-5 (Version None)
Quarter: 2005Q3

REPORT INFORMATION
  Report Type: 
  Country: None (occurrence: None)
  Receive Date: 20050908
  Receipt Date: 20050829
  Transmission Date: 20060218
  Serious: Yes (Other)
  Sender: FDA-Public Use
  Company Number: 2005076439

PATIENT
  Age: 29 Year
  Sex: Female

DRUGS (3)
  1. ZOLOFT [Suspect]
     Indication: DEPRESSED MOOD
     Dosage: 100 MG (100 MG, 1 IN 1 D), ORAL
     Route: 048
  2. ZOLOFT [Suspect]
     Indication: MENTAL DISORDER
     Dosage: 100 MG (100 MG, 1 IN 1 D), ORAL
     Route: 048
  3. OVCON (ETHINYLESTRADIOL NORETHISTERONE) [Concomitant]

REACTIONS (17)
  - ANOREXIA [None]
  - BLADDER SPASM [None]
  - CATECHOLAMINES URINE DECREASED [None]
  - CONFUSIONAL STATE [None]
  - CRYING [None]
  - DISORIENTATION [None]
  - DISTURBANCE IN ATTENTION [None]
  - EPINEPHRINE DECREASED [None]
  - FATIGUE [None]
  - MENTAL DISORDER [None]
  - MORBID THOUGHTS [None]
  - MULTIPLE SCLEROSIS [None]
  - NERVOUS SYSTEM DISORDER [None]
  - NEUROGENIC BLADDER [None]
  - NOREPINEPHRINE DECREASED [None]
  - SERUM SEROTONIN DECREASED [None]
  - URINE ANALYSIS ABNORMAL [None]
